FAERS Safety Report 15223269 (Version 1)
Quarter: 2018Q3

REPORT INFORMATION
  Report Type: Spontaneous
  Country: US (occurrence: US)
  Receive Date: 20180731
  Receipt Date: 20180731
  Transmission Date: 20181010
  Serious: No
  Sender: FDA-Public Use
  Company Number: US-TEVA-2018-US-933245

PATIENT
  Sex: Male

DRUGS (1)
  1. TRIENTINE [Suspect]
     Active Substance: TRIENTINE
     Indication: HEPATO-LENTICULAR DEGENERATION
     Route: 065
     Dates: start: 20170905

REACTIONS (2)
  - Intentional dose omission [Unknown]
  - Wrong technique in product usage process [Unknown]
